FAERS Safety Report 7642880-2 (Version None)
Quarter: 2011Q3

REPORT INFORMATION
  Report Type: 
  Country: None (occurrence: None)
  Receive Date: 20110728
  Receipt Date: 20110719
  Transmission Date: 20111222
  Serious: Yes (Death)
  Sender: FDA-Public Use
  Company Number: AU-BAXTER-2011BH023608

PATIENT
  Age: 75 Year
  Sex: Male

DRUGS (3)
  1. DIANEAL LOW CALCIUM WITH DEXTROSE 4.25% AND CALCIUM 2.5MEQ/L [Suspect]
     Indication: PERITONEAL DIALYSIS
     Route: 033
     Dates: end: 20110719
  2. EXTRANEAL [Suspect]
     Indication: PERITONEAL DIALYSIS
     Route: 033
     Dates: end: 20110719
  3. DIANEAL LOW CALCIUM WITH DEXTROSE 4.25% AND CALCIUM 2.5MEQ/L [Suspect]
     Indication: PERITONEAL DIALYSIS
     Route: 033
     Dates: end: 20110719

REACTIONS (1)
  - DEATH [None]
